FAERS Safety Report 4950272-X (Version None)
Quarter: 2006Q1

REPORT INFORMATION
  Report Type: 
  Country: None (occurrence: None)
  Receive Date: 20060316
  Receipt Date: 20060302
  Transmission Date: 20060701
  Serious: Yes (Other)
  Sender: FDA-Public Use
  Company Number: 2006-BP-02389RO

PATIENT
  Age: 22 Year
  Sex: Male

DRUGS (2)
  1. LITHIUM CARBONATE [Suspect]
     Indication: SCHIZOAFFECTIVE DISORDER
     Dosage: SEE TEXT, PO
     Route: 048
  2. ZIPRASIDONE HCL [Suspect]
     Indication: SCHIZOAFFECTIVE DISORDER
     Dosage: SEE TEXT, IM
     Route: 030

REACTIONS (10)
  - AGGRESSION [None]
  - ANTIPSYCHOTIC DRUG LEVEL INCREASED [None]
  - DIARRHOEA [None]
  - DRUG INTERACTION [None]
  - ELEVATED MOOD [None]
  - INSOMNIA [None]
  - IRRITABILITY [None]
  - PSYCHOMOTOR HYPERACTIVITY [None]
  - SOMNOLENCE [None]
  - THERAPEUTIC AGENT TOXICITY [None]
